FAERS Safety Report 7349545-5 (Version None)
Quarter: 2011Q1

REPORT INFORMATION
  Report Type: 
  Country: None (occurrence: None)
  Receive Date: 20110314
  Receipt Date: 20110307
  Transmission Date: 20110831
  Serious: No
  Sender: FDA-Public Use
  Company Number: US-ROXANE LABORATORIES, INC.-2011-RO-00190RO

PATIENT
  Sex: Female

DRUGS (2)
  1. FLECAINIDE ACETATE [Suspect]
     Indication: ATRIAL FIBRILLATION
     Dosage: 300 MG
     Route: 048
     Dates: start: 19970101, end: 20110214
  2. NEXIUM [Concomitant]

REACTIONS (3)
  - ATRIAL FIBRILLATION [None]
  - WRONG TECHNIQUE IN DRUG USAGE PROCESS [None]
  - TABLET PHYSICAL ISSUE [None]
